FAERS Safety Report 25715186 (Version 1)
Quarter: 2025Q3

REPORT INFORMATION
  Report Type: Spontaneous
  Country: EU (occurrence: EU)
  Receive Date: 20250822
  Receipt Date: 20250822
  Transmission Date: 20251021
  Serious: Yes (Other)
  Sender: BAXTER
  Company Number: None

PATIENT
  Age: 62 Year
  Sex: Male

DRUGS (4)
  1. DOXORUBICIN [Suspect]
     Active Substance: DOXORUBICIN
     Indication: Bladder transitional cell carcinoma
     Route: 042
     Dates: start: 20250609, end: 20250805
  2. CISPLATIN [Suspect]
     Active Substance: CISPLATIN
     Indication: Bladder transitional cell carcinoma
     Route: 042
     Dates: start: 20250609, end: 20250805
  3. VINBLASTINE [Suspect]
     Active Substance: VINBLASTINE
     Indication: Bladder transitional cell carcinoma
     Route: 042
     Dates: start: 20250609, end: 20250805
  4. METHOTREXATE [Suspect]
     Active Substance: METHOTREXATE
     Indication: Bladder transitional cell carcinoma
     Route: 042
     Dates: start: 20250609, end: 20250805

REACTIONS (1)
  - Retinal detachment [Unknown]

NARRATIVE: CASE EVENT DATE: 20250807
